FAERS Safety Report 16908150 (Version 1)
Quarter: 2019Q4

REPORT INFORMATION
  Report Type: Spontaneous
  Country: SE (occurrence: SE)
  Receive Date: 20191011
  Receipt Date: 20191011
  Transmission Date: 20200122
  Serious: Yes (Other)
  Sender: FDA-Public Use
  Company Number: SE-PFIZER INC-2019438056

PATIENT
  Age: 72 Year
  Sex: Female

DRUGS (4)
  1. DIGOXIN. [Concomitant]
     Active Substance: DIGOXIN
     Dosage: 0.25 MG, 1X/DAY
  2. REUMYL (ACETYLSALICYLIC ACID) [Interacting]
     Active Substance: ASPIRIN
     Indication: PAIN
     Dosage: 4 G, UNK (240-HOUR DOSE OF 4 GRAMS)
     Dates: start: 198008
  3. MINDIAB [Suspect]
     Active Substance: GLIPIZIDE
     Indication: TYPE 2 DIABETES MELLITUS
     Dosage: 5 MG, 3X/DAY (GRADUALLY INCREASED)
     Dates: start: 198002
  4. MODURETIC 5-50 [Concomitant]
     Active Substance: AMILORIDE HYDROCHLORIDE\HYDROCHLOROTHIAZIDE
     Dosage: 0.5 DF, 1X/DAY (1/2 TABLET X 1; HYDROCHLOROTHIAZIDE 25 MG AND AMILORIDE HYDROCHLORIDE 2.5 MG DAILY)

REACTIONS (2)
  - Potentiating drug interaction [Recovered/Resolved]
  - Hypoglycaemic coma [Recovered/Resolved]

NARRATIVE: CASE EVENT DATE: 198008
